FAERS Safety Report 16233398 (Version 2)
Quarter: 2019Q2

REPORT INFORMATION
  Report Type: Report from Study
  Country: DE (occurrence: DE)
  Receive Date: 20190424
  Receipt Date: 20190506
  Transmission Date: 20190711
  Serious: Yes (Hospitalization)
  Sender: FDA-Public Use
  Company Number: DE-TEVA-2019-DE-1040287

PATIENT
  Age: 6 Year
  Sex: Female
  Weight: 24.3 kg

DRUGS (3)
  1. TREOSULFAN [Suspect]
     Active Substance: TREOSULFAN
     Dosage: 10 GRAM DAILY;
     Route: 042
     Dates: start: 20181108, end: 20181110
  2. FLUDARABINE [Suspect]
     Active Substance: FLUDARABINE PHOSPHATE
     Dosage: 25 MILLIGRAM DAILY;
     Route: 042
     Dates: start: 20181107, end: 20181111
  3. THIOTEPA. [Suspect]
     Active Substance: THIOTEPA
     Dosage: 226 MILLIGRAM DAILY;
     Route: 042
     Dates: start: 20181112, end: 20181112

REACTIONS (1)
  - Paronychia [Not Recovered/Not Resolved]

NARRATIVE: CASE EVENT DATE: 20190412
